FAERS Safety Report 8003253-6 (Version None)
Quarter: 2011Q4

REPORT INFORMATION
  Report Type: 
  Country: None (occurrence: None)
  Receive Date: 20111222
  Receipt Date: 20111219
  Transmission Date: 20120403
  Serious: Yes (Death)
  Sender: FDA-Public Use
  Company Number: US-PFIZER INC-2011308923

PATIENT
  Age: 26 Year
  Sex: Female

DRUGS (6)
  1. NAPROXEN [Suspect]
     Dosage: UNK
     Route: 048
  2. MIRTAZAPINE [Suspect]
     Dosage: UNK
     Route: 048
  3. ZIPRASIDONE HCL [Suspect]
     Dosage: UNK
     Route: 048
  4. PROPRANOLOL HCL [Suspect]
     Dosage: UNK
     Route: 048
  5. AMITRIPTYLINE HCL [Suspect]
     Dosage: UNK
     Route: 048
  6. LAMOTRIGINE [Suspect]
     Dosage: UNK
     Route: 048

REACTIONS (4)
  - RESPIRATORY ARREST [None]
  - COMPLETED SUICIDE [None]
  - TOXICITY TO VARIOUS AGENTS [None]
  - CARDIAC ARREST [None]
